FAERS Safety Report 9461514 (Version 1)
Quarter: 2013Q3

REPORT INFORMATION
  Report Type: Spontaneous
  Country: GB (occurrence: GB)
  Receive Date: 20130816
  Receipt Date: 20130816
  Transmission Date: 20140515
  Serious: Yes (Other)
  Sender: FDA-Public Use
  Company Number: PHFR2013GB004708

PATIENT
  Sex: Female

DRUGS (1)
  1. ZOMETA [Suspect]
     Dosage: UNK UKN, EVERY 4 WEEKS

REACTIONS (4)
  - Carbohydrate antigen 15-3 increased [Unknown]
  - Neuralgia [Unknown]
  - Lymphoedema [Unknown]
  - Insomnia [Unknown]
